FAERS Safety Report 6715755-0 (Version None)
Quarter: 2010Q2

REPORT INFORMATION
  Report Type: 
  Country: None (occurrence: None)
  Receive Date: 20100506
  Receipt Date: 20100506
  Transmission Date: 20101027
  Serious: Yes (Hospitalization)
  Sender: FDA-Public Use
  Company Number: None

PATIENT
  Age: 29 Month
  Sex: Male
  Weight: 12.4 kg

DRUGS (2)
  1. CHILDREN'S MOTRIN [Suspect]
     Indication: PYREXIA
     Dosage: 5ML Q6-8 DEGREES 047 - ORAL
     Route: 048
     Dates: start: 20100416
  2. AMOXICILLIN [Concomitant]

REACTIONS (7)
  - COUGH [None]
  - DRUG INEFFECTIVE [None]
  - HALLUCINATION, VISUAL [None]
  - HYPERHIDROSIS [None]
  - RESPIRATORY DISORDER [None]
  - SOMNOLENCE [None]
  - VOMITING [None]
